FAERS Safety Report 4441562-8 (Version None)
Quarter: 2004Q3

REPORT INFORMATION
  Report Type: 
  Country: None (occurrence: None)
  Receive Date: 20040728
  Receipt Date: 20040223
  Transmission Date: 20050211
  Serious: No
  Sender: FDA-Public Use
  Company Number: US_0403101190

PATIENT
  Age: 8 Year
  Sex: Male
  Weight: 36 kg

DRUGS (4)
  1. STRATTERA [Suspect]
     Indication: ATTENTION DEFICIT/HYPERACTIVITY DISORDER
     Dosage: 40 MG/1 DAY
     Dates: start: 20040214
  2. ADDERALL 20 [Concomitant]
  3. ZYRTEC [Concomitant]
  4. SINGULAIR [Concomitant]

REACTIONS (6)
  - ABDOMINAL PAIN UPPER [None]
  - ABNORMAL BEHAVIOUR [None]
  - DECREASED APPETITE [None]
  - NAUSEA [None]
  - PYREXIA [None]
  - VOMITING [None]
